FAERS Safety Report 11693853 (Version 1)
Quarter: 2015Q4

REPORT INFORMATION
  Report Type: Spontaneous
  Country: JP (occurrence: JP)
  Receive Date: 20151103
  Receipt Date: 20151103
  Transmission Date: 20160304
  Serious: Yes (Other)
  Sender: FDA-Public Use
  Company Number: JP-EMD SERONO-8051200

PATIENT
  Age: 35 Year
  Sex: Female

DRUGS (3)
  1. BUSERELIN ACETATE [Concomitant]
     Active Substance: BUSERELIN ACETATE
     Indication: OVULATION INDUCTION
     Route: 065
  2. GONAL-F [Suspect]
     Active Substance: FOLLITROPIN
     Indication: OVULATION INDUCTION
     Route: 058
  3. HMG                                /01277601/ [Concomitant]
     Indication: OVULATION INDUCTION
     Route: 065

REACTIONS (4)
  - Ovarian hyperstimulation syndrome [Unknown]
  - Deep vein thrombosis [Unknown]
  - Embolic stroke [Recovering/Resolving]
  - Atrial septal defect [Unknown]
